FAERS Safety Report 10638617 (Version 4)
Quarter: 2015Q1

REPORT INFORMATION
  Report Type: Report from Study
  Country: US (occurrence: US)
  Receive Date: 20141208
  Receipt Date: 20150121
  Transmission Date: 20150720
  Serious: Yes (Hospitalization, Other)
  Sender: FDA-Public Use
  Company Number: US-BAYER-2014-163686

PATIENT
  Age: 70 Year
  Sex: Male
  Weight: 113.9 kg

DRUGS (6)
  1. PREDNISONE. [Suspect]
     Active Substance: PREDNISONE
     Indication: METASTASES TO BONE
  2. RADIUM-223 DICHLORIDE [Suspect]
     Active Substance: RADIUM RA-223 DICHLORIDE
     Indication: METASTASES TO BONE
  3. ABIRATERONE [Suspect]
     Active Substance: ABIRATERONE
     Indication: PROSTATE CANCER METASTATIC
     Dosage: 1000 MG, QD
     Route: 048
     Dates: start: 20140707, end: 20141112
  4. ABIRATERONE [Suspect]
     Active Substance: ABIRATERONE
     Indication: METASTASES TO BONE
  5. PREDNISONE. [Suspect]
     Active Substance: PREDNISONE
     Indication: PROSTATE CANCER METASTATIC
     Dosage: UNK
     Dates: start: 20140707, end: 20141112
  6. RADIUM-223 DICHLORIDE [Suspect]
     Active Substance: RADIUM RA-223 DICHLORIDE
     Indication: PROSTATE CANCER METASTATIC
     Dosage: 1.35 MCI, MONTHLY
     Route: 042
     Dates: start: 20141001, end: 20141001

REACTIONS (7)
  - Fatigue [None]
  - Diarrhoea [None]
  - Nausea [None]
  - Decreased appetite [None]
  - Chest pain [None]
  - Abdominal pain [None]
  - Ventricular tachycardia [None]

NARRATIVE: CASE EVENT DATE: 20141002
